FAERS Safety Report 7173909-6 (Version None)
Quarter: 2010Q4

REPORT INFORMATION
  Report Type: 
  Country: None (occurrence: None)
  Receive Date: 20101215
  Receipt Date: 20101215
  Transmission Date: 20110411
  Serious: Yes (Disabling, Other)
  Sender: FDA-Public Use
  Company Number: None

PATIENT
  Age: 72 Year
  Sex: Female
  Weight: 104.3273 kg

DRUGS (8)
  1. REMINYL ER [Suspect]
     Indication: DEMENTIA
     Dosage: 4 MG 1 DAILY 8 MG, 12 MG, 16 MG, 24 MG
     Dates: start: 20060503
  2. REMINYL ER [Suspect]
     Indication: DEMENTIA
     Dosage: 4 MG 1 DAILY 8 MG, 12 MG, 16 MG, 24 MG
     Dates: start: 20060602
  3. REMINYL ER [Suspect]
     Indication: DEMENTIA
     Dosage: 4 MG 1 DAILY 8 MG, 12 MG, 16 MG, 24 MG
     Dates: start: 20060706
  4. REMINYL ER [Suspect]
     Indication: DEMENTIA
     Dosage: 4 MG 1 DAILY 8 MG, 12 MG, 16 MG, 24 MG
     Dates: start: 20060806
  5. TIAZAC [Concomitant]
  6. ATACAND [Concomitant]
  7. HYDROCHLOROTHIAZIDE [Concomitant]
  8. . [Concomitant]

REACTIONS (8)
  - ASTHENIA [None]
  - BLINDNESS [None]
  - DEMENTIA ALZHEIMER'S TYPE [None]
  - DEPRESSION [None]
  - DRUG INEFFECTIVE [None]
  - EYE HAEMORRHAGE [None]
  - PAIN [None]
  - TREMOR [None]
